FAERS Safety Report 6052129-2 (Version None)
Quarter: 2009Q1

REPORT INFORMATION
  Report Type: 
  Country: None (occurrence: None)
  Receive Date: 20090126
  Receipt Date: 20090120
  Transmission Date: 20090719
  Serious: Yes (Death, Hospitalization, Other)
  Sender: FDA-Public Use
  Company Number: ES-ROXANE LABORATORIES, INC.-2009-RO-00088RO

PATIENT
  Age: 49 Year
  Sex: Female

DRUGS (5)
  1. MYCOPHENOLATE MOFETIL [Suspect]
     Indication: IMMUNOSUPPRESSION
     Dosage: 2G
  2. METHYLPREDNISOLONE [Suspect]
     Indication: IMMUNOSUPPRESSION
     Dosage: 4MG
  3. TACROLIMUS [Suspect]
     Indication: IMMUNOSUPPRESSION
     Dosage: 2MG
  4. ITRACONAZOLE [Concomitant]
     Indication: HISTOPLASMOSIS DISSEMINATED
  5. AMPHOTERICIN B [Concomitant]
     Indication: HISTOPLASMOSIS DISSEMINATED

REACTIONS (7)
  - ASCITES [None]
  - CARDIAC TAMPONADE [None]
  - HISTOPLASMOSIS DISSEMINATED [None]
  - HYPERTHERMIA [None]
  - PERICARDIAL HAEMORRHAGE [None]
  - RELAPSING FEVER [None]
  - SUBCUTANEOUS NODULE [None]
